FAERS Safety Report 7529562-2 (Version None)
Quarter: 2011Q2

REPORT INFORMATION
  Report Type: 
  Country: None (occurrence: None)
  Receive Date: 20110607
  Receipt Date: 20110602
  Transmission Date: 20111010
  Serious: Yes (Life-Threatening)
  Sender: FDA-Public Use
  Company Number: AU-ASTRAZENECA-2011SE34109

PATIENT
  Age: 67 Year
  Sex: Female
  Weight: 80 kg

DRUGS (7)
  1. CRESTOR [Suspect]
     Route: 048
     Dates: start: 20110323, end: 20110406
  2. ENOXAPARIN SODIUM [Concomitant]
  3. MACROLIDE ANTIBIOTIC [Concomitant]
  4. ZOLOFT [Concomitant]
  5. WARFARIN SODIUM [Concomitant]
  6. RABEPRAZOLE SODIUM [Concomitant]
  7. THYROXIN SODIUM [Concomitant]

REACTIONS (1)
  - DEEP VEIN THROMBOSIS [None]
